FAERS Safety Report 6146970-5 (Version None)
Quarter: 2009Q2

REPORT INFORMATION
  Report Type: 
  Country: None (occurrence: None)
  Receive Date: 20090403
  Receipt Date: 20090326
  Transmission Date: 20091009
  Serious: Yes (Hospitalization)
  Sender: FDA-Public Use
  Company Number: 2009AL001792

PATIENT
  Age: 79 Year
  Sex: Female

DRUGS (4)
  1. MIRTAZAPINE [Suspect]
     Dosage: PO
     Route: 048
  2. RAMIPRIL [Concomitant]
  3. METOPROLOL SUCCINATE [Concomitant]
  4. FUROSEMIDE [Concomitant]

REACTIONS (4)
  - BLOOD OSMOLARITY DECREASED [None]
  - CONFUSIONAL STATE [None]
  - HYPONATRAEMIA [None]
  - URINE OSMOLARITY INCREASED [None]
